FAERS Safety Report 16586914 (Version 1)
Quarter: 2019Q3

REPORT INFORMATION
  Report Type: Spontaneous
  Country: US (occurrence: US)
  Receive Date: 20190717
  Receipt Date: 20190717
  Transmission Date: 20191004
  Serious: No
  Sender: FDA-Public Use
  Company Number: US-SA-2019SA186821

PATIENT
  Age: 76 Year
  Sex: Female

DRUGS (5)
  1. TUMS [Concomitant]
     Active Substance: CALCIUM CARBONATE
     Dosage: UNK UNK, UNK
     Route: 065
  2. ALKA SELTZER [ACETYLSALICYLIC ACID] [Concomitant]
     Dosage: UNK UNK, UNK
     Route: 065
  3. ZANTAC 150 (RANITIDINE HYDROCHLORIDE) [Suspect]
     Active Substance: RANITIDINE HYDROCHLORIDE
     Dosage: 2 DF, UNK
     Route: 065
  4. ROLAIDS ULTRA STRENGTH PLUS GAS [Concomitant]
     Dosage: UNK UNK, UNK
     Route: 065
  5. PRILOSEC [Concomitant]
     Active Substance: OMEPRAZOLE MAGNESIUM
     Dosage: UNK UNK, UNK
     Route: 065

REACTIONS (1)
  - Dyspepsia [Unknown]
